FAERS Safety Report 7874234-8 (Version None)
Quarter: 2011Q4

REPORT INFORMATION
  Report Type: 
  Country: None (occurrence: None)
  Receive Date: 20111030
  Receipt Date: 20110517
  Transmission Date: 20120403
  Serious: No
  Sender: FDA-Public Use
  Company Number: US-AMGEN-USASP2011025451

PATIENT
  Age: 51 Year
  Sex: Female

DRUGS (1)
  1. ENBREL [Suspect]
     Indication: RHEUMATOID ARTHRITIS
     Dosage: 25 MG, 2 TIMES/WK
     Dates: start: 19990601

REACTIONS (8)
  - JOINT SWELLING [None]
  - PHARYNGITIS STREPTOCOCCAL [None]
  - ECZEMA [None]
  - JOINT STIFFNESS [None]
  - DRUG INEFFECTIVE [None]
  - RHEUMATOID ARTHRITIS [None]
  - GAIT DISTURBANCE [None]
  - SINUSITIS [None]
